FAERS Safety Report 24937594 (Version 1)
Quarter: 2025Q1

REPORT INFORMATION
  Report Type: Spontaneous
  Country: US (occurrence: US)
  Receive Date: 20250206
  Receipt Date: 20250206
  Transmission Date: 20250409
  Serious: Yes (Other)
  Sender: BRISTOL-MYERS SQUIBB COMPANY
  Company Number: US-BRISTOL-MYERS SQUIBB COMPANY-2025-014579

PATIENT
  Age: 53 Year
  Sex: Male

DRUGS (20)
  1. PACLITAXEL [Suspect]
     Active Substance: PACLITAXEL
     Indication: Cholangiocarcinoma
  2. PACLITAXEL [Suspect]
     Active Substance: PACLITAXEL
  3. PACLITAXEL [Suspect]
     Active Substance: PACLITAXEL
  4. PACLITAXEL [Suspect]
     Active Substance: PACLITAXEL
  5. PACLITAXEL [Suspect]
     Active Substance: PACLITAXEL
  6. PACLITAXEL [Suspect]
     Active Substance: PACLITAXEL
  7. PACLITAXEL [Suspect]
     Active Substance: PACLITAXEL
  8. PACLITAXEL [Suspect]
     Active Substance: PACLITAXEL
  9. PACLITAXEL [Suspect]
     Active Substance: PACLITAXEL
  10. GEMCITABINE [Suspect]
     Active Substance: GEMCITABINE
     Indication: Cholangiocarcinoma
  11. GEMCITABINE [Suspect]
     Active Substance: GEMCITABINE
  12. GEMCITABINE [Suspect]
     Active Substance: GEMCITABINE
  13. GEMCITABINE [Suspect]
     Active Substance: GEMCITABINE
  14. GEMCITABINE [Suspect]
     Active Substance: GEMCITABINE
  15. GEMCITABINE [Suspect]
     Active Substance: GEMCITABINE
  16. GEMCITABINE [Suspect]
     Active Substance: GEMCITABINE
  17. GEMCITABINE [Suspect]
     Active Substance: GEMCITABINE
  18. GEMCITABINE [Suspect]
     Active Substance: GEMCITABINE
  19. CISPLATIN [Suspect]
     Active Substance: CISPLATIN
     Indication: Cholangiocarcinoma
  20. DURVALUMAB [Concomitant]
     Active Substance: DURVALUMAB
     Indication: Cholangiocarcinoma

REACTIONS (2)
  - Thrombocytopenia [Unknown]
  - Off label use [Unknown]
